FAERS Safety Report 6189405-9 (Version None)
Quarter: 2009Q2

REPORT INFORMATION
  Report Type: 
  Country: None (occurrence: None)
  Receive Date: 20090512
  Receipt Date: 20090427
  Transmission Date: 20091009
  Serious: Yes (Death)
  Sender: FDA-Public Use
  Company Number: 2009S1007246

PATIENT
  Age: 27 Year
  Sex: Male

DRUGS (2)
  1. AZATHIOPRINE [Suspect]
     Indication: SYSTEMIC LUPUS ERYTHEMATOSUS
     Dates: start: 19810101, end: 19830101
  2. CYCLOPHOSPHAMIDE [Suspect]
     Indication: SYSTEMIC LUPUS ERYTHEMATOSUS
     Dosage: ORAL
     Route: 048
     Dates: start: 19830101

REACTIONS (6)
  - APATHY [None]
  - BRADYPHRENIA [None]
  - DYSARTHRIA [None]
  - JC VIRUS TEST POSITIVE [None]
  - PROGRESSIVE MULTIFOCAL LEUKOENCEPHALOPATHY [None]
  - TREMOR [None]
